FAERS Safety Report 6691737-2 (Version None)
Quarter: 2010Q2

REPORT INFORMATION
  Report Type: 
  Country: None (occurrence: None)
  Receive Date: 20100422
  Receipt Date: 20090710
  Transmission Date: 20101027
  Serious: No
  Sender: FDA-Public Use
  Company Number: US-ASTRAZENECA-2009UW15182

PATIENT
  Age: 66 Year
  Sex: Female
  Weight: 61.2 kg

DRUGS (1)
  1. METOPROLOL SUCCINATE [Suspect]
     Route: 048
     Dates: start: 20090623, end: 20090706

REACTIONS (2)
  - BLOOD PRESSURE INCREASED [None]
  - PALPITATIONS [None]
